FAERS Safety Report 8125993 (Version 4)
Quarter: 2016Q4

REPORT INFORMATION
  Report Type: Spontaneous
  Country: CA (occurrence: CA)
  Receive Date: 20110908
  Receipt Date: 20161222
  Transmission Date: 20170207
  Serious: Yes (Other)
  Sender: FDA-Public Use
  Company Number: CA-PFIZER INC-2011208094

PATIENT
  Age: 62 Year
  Sex: Male
  Weight: 83.9 kg

DRUGS (1)
  1. XALATAN [Suspect]
     Active Substance: LATANOPROST
     Indication: GLAUCOMA
     Dosage: 1 GTT IN BOTH EYES, 1X/DAY AT BEDTIME
     Route: 047
     Dates: start: 201108

REACTIONS (2)
  - Diplopia [Unknown]
  - Visual acuity reduced [Unknown]
